FAERS Safety Report 4999574-1 (Version None)
Quarter: 2006Q2

REPORT INFORMATION
  Report Type: 
  Country: None (occurrence: None)
  Receive Date: 20060511
  Receipt Date: 20060503
  Transmission Date: 20061013
  Serious: Yes (Other)
  Sender: FDA-Public Use
  Company Number: PHBS2006NO06592

PATIENT
  Sex: Male

DRUGS (1)
  1. ZOMETA [Suspect]
     Dosage: 4 TIMES
     Route: 065
     Dates: start: 20050101, end: 20050101

REACTIONS (4)
  - GINGIVAL DISORDER [None]
  - IMPAIRED HEALING [None]
  - OSTEONECROSIS [None]
  - TOOTH EXTRACTION [None]
